FAERS Safety Report 7179573-4 (Version None)
Quarter: 2010Q4

REPORT INFORMATION
  Report Type: 
  Country: None (occurrence: None)
  Receive Date: 20101221
  Receipt Date: 20101207
  Transmission Date: 20110411
  Serious: Yes (Other)
  Sender: FDA-Public Use
  Company Number: PHHY2010US84255

PATIENT
  Sex: Male

DRUGS (3)
  1. GLEEVEC [Suspect]
     Dosage: 400 MG, QD
  2. ADVAIR [Concomitant]
  3. SPIRIVA [Concomitant]

REACTIONS (2)
  - EMPHYSEMA [None]
  - LACRIMATION INCREASED [None]
